FAERS Safety Report 5207833-2 (Version None)
Quarter: 2007Q1

REPORT INFORMATION
  Report Type: 
  Country: None (occurrence: None)
  Receive Date: 20070112
  Receipt Date: 20070103
  Transmission Date: 20070707
  Serious: Yes (Other)
  Sender: FDA-Public Use
  Company Number: FR-PFIZER INC-2007001661

PATIENT
  Age: 13 Year
  Sex: Female

DRUGS (4)
  1. VFEND [Suspect]
     Indication: ASPERGILLOSIS
  2. CANCIDAS [Concomitant]
  3. DRUG, UNSPECIFIED [Concomitant]
  4. AMBISOME [Concomitant]

REACTIONS (1)
  - CHEILITIS [None]
